FAERS Safety Report 8419195-8 (Version None)
Quarter: 2012Q2

REPORT INFORMATION
  Report Type: 
  Country: None (occurrence: None)
  Receive Date: 20120607
  Receipt Date: 20120530
  Transmission Date: 20120825
  Serious: Yes (Other)
  Sender: FDA-Public Use
  Company Number: CH-JNJFOC-20120600618

PATIENT
  Age: 55 Year
  Sex: Male
  Weight: 95 kg

DRUGS (3)
  1. XARELTO [Suspect]
     Indication: THROMBOSIS PROPHYLAXIS
     Route: 048
     Dates: start: 20120413, end: 20120418
  2. XARELTO [Suspect]
     Indication: MENISCUS REMOVAL
     Route: 048
     Dates: start: 20120413, end: 20120418
  3. DIOVAN [Concomitant]
     Indication: ESSENTIAL HYPERTENSION
     Route: 048
     Dates: start: 20120307

REACTIONS (4)
  - HYPERTENSION [None]
  - TACHYCARDIA [None]
  - THROAT TIGHTNESS [None]
  - ANXIETY [None]
